FAERS Safety Report 25752984 (Version 1)
Quarter: 2025Q3

REPORT INFORMATION
  Report Type: Spontaneous
  Country: JP (occurrence: JP)
  Receive Date: 20250902
  Receipt Date: 20250902
  Transmission Date: 20251021
  Serious: Yes (Death)
  Sender: MERCK SHARP & DOHME LLC
  Company Number: JP-009507513-2325230

PATIENT
  Age: 7 Decade
  Sex: Male

DRUGS (4)
  1. PEMBROLIZUMAB [Suspect]
     Active Substance: PEMBROLIZUMAB
     Indication: Pharyngeal cancer
  2. PEMBROLIZUMAB [Suspect]
     Active Substance: PEMBROLIZUMAB
     Indication: Pharyngeal cancer
  3. SELEGILINE HYDROCHLORIDE [Suspect]
     Active Substance: SELEGILINE HYDROCHLORIDE
     Indication: Pharyngeal cancer
  4. SELEGILINE HYDROCHLORIDE [Suspect]
     Active Substance: SELEGILINE HYDROCHLORIDE
     Indication: Pharyngeal cancer

REACTIONS (4)
  - Death [Fatal]
  - Rash pruritic [Unknown]
  - Hepatic function abnormal [Unknown]
  - Oral surgery [Unknown]
